FAERS Safety Report 5809957-5 (Version None)
Quarter: 2008Q3

REPORT INFORMATION
  Report Type: 
  Country: None (occurrence: None)
  Receive Date: 20080714
  Receipt Date: 20080714
  Transmission Date: 20090109
  Serious: No
  Sender: FDA-Public Use
  Company Number: None

PATIENT
  Sex: Male
  Weight: 61.2356 kg

DRUGS (1)
  1. CIPROFLOXACIN HCL [Suspect]
     Indication: DIARRHOEA
     Dosage: 500MG 2 PER DAY
     Dates: start: 20071212, end: 20071218

REACTIONS (8)
  - ABDOMINAL PAIN [None]
  - ANXIETY [None]
  - DEPRESSION [None]
  - DIZZINESS [None]
  - MYALGIA [None]
  - PHARMACEUTICAL PRODUCT COMPLAINT [None]
  - SLEEP DISORDER [None]
  - VOMITING [None]
